FAERS Safety Report 14557882 (Version 1)
Quarter: 2018Q1

REPORT INFORMATION
  Report Type: Spontaneous
  Country: US (occurrence: US)
  Receive Date: 20180221
  Receipt Date: 20180221
  Transmission Date: 20180509
  Serious: Yes (Other)
  Sender: FDA-Public Use
  Company Number: US-NOVOPROD-586150

PATIENT
  Sex: Female

DRUGS (4)
  1. NOVOLOG [Suspect]
     Active Substance: INSULIN ASPART
     Indication: PRODUCT USED FOR UNKNOWN INDICATION
     Dosage: UNK
     Route: 058
     Dates: start: 2017
  2. LANTUS [Suspect]
     Active Substance: INSULIN GLARGINE
     Indication: PRODUCT USED FOR UNKNOWN INDICATION
     Dosage: UNK
     Route: 058
     Dates: start: 2017
  3. METFORMIN [Suspect]
     Active Substance: METFORMIN HYDROCHLORIDE
     Indication: PRODUCT USED FOR UNKNOWN INDICATION
     Dosage: UNK
     Dates: start: 2017
  4. INSULIN [Suspect]
     Active Substance: INSULIN NOS
     Indication: PRODUCT USED FOR UNKNOWN INDICATION
     Dosage: UNK
     Route: 058
     Dates: start: 2017

REACTIONS (9)
  - Dizziness [Unknown]
  - Intervertebral disc protrusion [Unknown]
  - Exostosis [Unknown]
  - Diabetic retinopathy [Unknown]
  - Fibromyalgia [Unknown]
  - Intervertebral disc degeneration [Unknown]
  - Osteoarthritis [Unknown]
  - Fatigue [Unknown]
  - Headache [Unknown]
